FAERS Safety Report 16856662 (Version 2)
Quarter: 2019Q4

REPORT INFORMATION
  Report Type: Spontaneous
  Country: US (occurrence: US)
  Receive Date: 20190926
  Receipt Date: 20191118
  Transmission Date: 20200122
  Serious: No
  Sender: FDA-Public Use
  Company Number: US-JNJFOC-20190931643

PATIENT
  Age: 74 Year
  Sex: Female
  Weight: 77.11 kg

DRUGS (5)
  1. DURAGESIC [Suspect]
     Active Substance: FENTANYL
     Route: 062
     Dates: start: 2019
  2. DURAGESIC [Suspect]
     Active Substance: FENTANYL
     Route: 062
  3. DURAGESIC [Suspect]
     Active Substance: FENTANYL
     Route: 062
     Dates: end: 2019
  4. DURAGESIC [Suspect]
     Active Substance: FENTANYL
     Route: 062
  5. DURAGESIC [Suspect]
     Active Substance: FENTANYL
     Indication: PAIN MANAGEMENT
     Route: 062
     Dates: start: 2014

REACTIONS (2)
  - Product packaging quantity issue [Unknown]
  - Drug ineffective [Unknown]

NARRATIVE: CASE EVENT DATE: 20190923
